FAERS Safety Report 8053283-3 (Version None)
Quarter: 2012Q1

REPORT INFORMATION
  Report Type: 
  Country: None (occurrence: None)
  Receive Date: 20120118
  Receipt Date: 20120111
  Transmission Date: 20120608
  Serious: Yes (Other)
  Sender: FDA-Public Use
  Company Number: HU-ROCHE-1030083

PATIENT
  Sex: Male
  Weight: 92 kg

DRUGS (6)
  1. CYNT [Concomitant]
     Indication: HYPERTENSION
     Route: 048
     Dates: start: 20061015
  2. ENVAS [Concomitant]
     Indication: DIABETES MELLITUS
     Route: 048
     Dates: start: 20080604
  3. ACTEMRA [Suspect]
     Indication: RHEUMATOID ARTHRITIS
     Route: 042
     Dates: start: 20110727, end: 20110928
  4. METHOTREXATE [Concomitant]
     Indication: RHEUMATOID ARTHRITIS
     Route: 048
     Dates: start: 20090622
  5. IRBESARTAN [Concomitant]
     Indication: HYPERTENSION
     Route: 048
     Dates: start: 20061015
  6. GLUCOBAY [Concomitant]
     Indication: DIABETES MELLITUS
     Route: 048
     Dates: start: 20080604

REACTIONS (1)
  - ATRIAL FIBRILLATION [None]
